FAERS Safety Report 12777482 (Version 3)
Quarter: 2020Q2

REPORT INFORMATION
  Report Type: Spontaneous
  Country: US (occurrence: US)
  Receive Date: 20160924
  Receipt Date: 20200521
  Transmission Date: 20200713
  Serious: No
  Sender: FDA-Public Use
  Company Number: US-TEVA-599190USA

PATIENT
  Sex: Male

DRUGS (3)
  1. CLONAZEPAM. [Suspect]
     Active Substance: CLONAZEPAM
     Indication: RESTLESS LEGS SYNDROME
     Dosage: .5 MILLIGRAM DAILY;
  2. CLONAZEPAM. [Suspect]
     Active Substance: CLONAZEPAM
     Indication: PANIC DISORDER
     Dosage: 1.5 MILLIGRAM DAILY;
  3. CLONAZEPAM. [Suspect]
     Active Substance: CLONAZEPAM
     Indication: CHRONIC FATIGUE SYNDROME

REACTIONS (6)
  - Visual impairment [Unknown]
  - Abdominal distension [Unknown]
  - Nervousness [Unknown]
  - Dizziness [Unknown]
  - Feeling abnormal [Unknown]
  - Abdominal discomfort [Unknown]
